FAERS Safety Report 4956645-3 (Version None)
Quarter: 2006Q1

REPORT INFORMATION
  Report Type: 
  Country: None (occurrence: None)
  Receive Date: 20060127
  Receipt Date: 20050719
  Transmission Date: 20060701
  Serious: Yes (Death)
  Sender: FDA-Public Use
  Company Number: 05-07-1265

PATIENT
  Age: 47 Year
  Sex: Male
  Weight: 122.4712 kg

DRUGS (3)
  1. CLOZAPINE [Suspect]
     Indication: SCHIZOAFFECTIVE DISORDER
     Dosage: 700MG QHS, ORAL
     Route: 048
     Dates: start: 20031001, end: 20050701
  2. ESKALITH [Concomitant]
  3. KLONOPIN [Concomitant]

REACTIONS (1)
  - UNEVALUABLE EVENT [None]
